FAERS Safety Report 7605342-4 (Version None)
Quarter: 2011Q3

REPORT INFORMATION
  Report Type: 
  Country: None (occurrence: None)
  Receive Date: 20110713
  Receipt Date: 20110707
  Transmission Date: 20111222
  Serious: Yes (Other)
  Sender: FDA-Public Use
  Company Number: CA-ELI_LILLY_AND_COMPANY-CA201107001679

PATIENT
  Sex: Male

DRUGS (8)
  1. DURALITH [Concomitant]
  2. ZYPREXA [Suspect]
     Indication: SCHIZOAFFECTIVE DISORDER
     Dosage: 5 MG, EACH EVENING
     Dates: start: 19970211
  3. ZYPREXA [Suspect]
     Dosage: 7.5 MG, EACH EVENING
  4. RISPERIDONE [Concomitant]
  5. ZYPREXA [Suspect]
     Dosage: 15 MG, EACH EVENING
  6. ZYPREXA [Suspect]
     Dosage: 20 MG, EACH EVENING
     Dates: start: 20030729
  7. ZYPREXA [Suspect]
     Dosage: 10 MG, EACH EVENING
  8. ZOPICLONE [Concomitant]

REACTIONS (4)
  - DIABETES MELLITUS [None]
  - RENAL FAILURE [None]
  - CEREBROVASCULAR ACCIDENT [None]
  - WEIGHT INCREASED [None]
